FAERS Safety Report 9562585 (Version 1)
Quarter: 2013Q3

REPORT INFORMATION
  Report Type: Report from Study
  Country: PL (occurrence: PL)
  Receive Date: 20130927
  Receipt Date: 20130927
  Transmission Date: 20140515
  Serious: Yes (Hospitalization)
  Sender: FDA-Public Use
  Company Number: PHHO2013PL012515

PATIENT
  Sex: 0

DRUGS (8)
  1. AFINITOR [Suspect]
     Indication: BREAST CANCER
     Dosage: 5 MG, BID
     Route: 048
     Dates: start: 20130712, end: 20130920
  2. EXEMESTANE [Suspect]
     Indication: BREAST CANCER
     Dosage: 25 MG, UNK
     Route: 048
     Dates: start: 20130712, end: 20130920
  3. ADIPINE//NIFEDIPINE [Concomitant]
     Dosage: 5 MG, QD
     Route: 048
  4. LOSARTAN [Concomitant]
     Dosage: 50 MG, QD
     Route: 048
  5. BUNONDOL [Concomitant]
     Dosage: 92 MG, QD
     Route: 048
  6. EUTHYROX [Concomitant]
     Dosage: 25 MG, QD
     Route: 048
  7. NOVOMIX [Concomitant]
     Indication: DIABETES MELLITUS
     Dosage: UNK
  8. NOVORAPID [Concomitant]
     Indication: DIABETES MELLITUS
     Dosage: UNK

REACTIONS (1)
  - Subileus [Recovered/Resolved]
